FAERS Safety Report 9968701 (Version 1)
Quarter: 2014Q1

REPORT INFORMATION
  Report Type: Report from Study
  Country: US (occurrence: US)
  Receive Date: 20140306
  Receipt Date: 20140306
  Transmission Date: 20141002
  Serious: No
  Sender: FDA-Public Use
  Company Number: US-ABBVIE-13P-163-1147048-00

PATIENT
  Age: 38 Year
  Sex: Male

DRUGS (4)
  1. HUMIRA [Suspect]
     Indication: PSORIASIS
     Dosage: LOADING DOSE RECEIVED ON 10-SEP-2013
     Dates: start: 20130910, end: 20130910
  2. HUMIRA [Suspect]
  3. OXYCODONE [Concomitant]
     Indication: PAIN
  4. OXYMORPHONE [Concomitant]
     Indication: PAIN

REACTIONS (1)
  - Ear pain [Not Recovered/Not Resolved]
